FAERS Safety Report 10214851 (Version 3)
Quarter: 2014Q2

REPORT INFORMATION
  Report Type: Report from Study
  Country: SE (occurrence: SE)
  Receive Date: 20140603
  Receipt Date: 20140620
  Transmission Date: 20141212
  Serious: Yes (Hospitalization)
  Sender: FDA-Public Use
  Company Number: SE-JNJFOC-20140413973

PATIENT
  Age: 54 Year
  Sex: Male
  Weight: 65.7 kg

DRUGS (12)
  1. IBRUTINIB [Suspect]
     Indication: CHRONIC LYMPHOCYTIC LEUKAEMIA
     Route: 048
     Dates: start: 20130507, end: 20140513
  2. IBRUTINIB [Suspect]
     Indication: CHRONIC LYMPHOCYTIC LEUKAEMIA
     Route: 048
     Dates: start: 20130516, end: 20140412
  3. SIMVASTATIN [Concomitant]
     Route: 048
     Dates: start: 20130114
  4. PREDNISOLONE [Concomitant]
     Route: 048
  5. RED BLOOD CELLS [Concomitant]
     Route: 042
     Dates: start: 20140402, end: 20140402
  6. BRICANYL [Concomitant]
     Route: 055
     Dates: start: 20130128
  7. INSULATARD NOS [Concomitant]
     Dosage: 100 UNK AS NEEDED
     Route: 058
     Dates: start: 20111210
  8. NIVESTIM [Concomitant]
     Route: 058
     Dates: start: 20130904
  9. NOVORAPID [Concomitant]
     Route: 058
     Dates: start: 20111210
  10. SELOKEN ZOC/ASA [Concomitant]
     Route: 048
     Dates: start: 20110311
  11. FRAGMIN [Concomitant]
     Indication: PROPHYLAXIS
     Dosage: 500 UNK 4 TIMES A DAY
     Route: 058
     Dates: start: 20120724
  12. PENTACARINAT [Concomitant]
     Route: 048
     Dates: start: 20130128

REACTIONS (2)
  - Pyrexia [Recovered/Resolved]
  - Haemorrhage [Recovered/Resolved]
